FAERS Safety Report 9385949 (Version 1)
Quarter: 2013Q3

REPORT INFORMATION
  Report Type: Spontaneous
  Country: IT (occurrence: IT)
  Receive Date: 20130705
  Receipt Date: 20130705
  Transmission Date: 20140515
  Serious: Yes (Hospitalization)
  Sender: FDA-Public Use
  Company Number: IT-009507513-1306ITA010951

PATIENT
  Age: 13 Year
  Sex: Male

DRUGS (4)
  1. DORZOLAMIDE HYDROCHLORIDE (+) TIMOLOL MALEATE [Suspect]
     Indication: INTRAOCULAR PRESSURE DECREASED
     Dosage: UNK
     Route: 061
  2. DEXAMETHASONE [Suspect]
     Indication: EYE INFLAMMATION
     Dosage: 6 TIMES A DAY
     Route: 061
  3. ACETAZOLAMIDE [Concomitant]
     Dosage: 250 MG, TID
     Route: 048
  4. MANNITOL [Concomitant]
     Indication: INTRAOCULAR PRESSURE DECREASED
     Dosage: 500 ML, BID
     Route: 042

REACTIONS (2)
  - Eye operation [Unknown]
  - Drug ineffective [Unknown]
